FAERS Safety Report 10152958 (Version 1)
Quarter: 2014Q2

REPORT INFORMATION
  Report Type: Spontaneous
  Country: US (occurrence: US)
  Receive Date: 20140505
  Receipt Date: 20140505
  Transmission Date: 20141212
  Serious: No
  Sender: FDA-Public Use
  Company Number: US-GILEAD-2014-0101227

PATIENT
  Sex: Female

DRUGS (1)
  1. SOVALDI [Suspect]
     Indication: HEPATITIS C
     Dosage: UNK, BID FOR 1.5 WEEKS
     Route: 065

REACTIONS (3)
  - Feeling jittery [Unknown]
  - Abdominal pain [Unknown]
  - Overdose [Unknown]
